FAERS Safety Report 7299590-3 (Version None)
Quarter: 2010Q4

REPORT INFORMATION
  Report Type: 
  Country: None (occurrence: None)
  Receive Date: 20101223
  Receipt Date: 20100712
  Transmission Date: 20110411
  Serious: Yes (Other)
  Sender: FDA-Public Use
  Company Number: 307527

PATIENT
  Age: 38 Year
  Sex: Female
  Weight: 78.9 kg

DRUGS (2)
  1. LEVEMIR [Suspect]
     Indication: TYPE 2 DIABETES MELLITUS
     Dosage: 15 UL, QD, SUBCUTANEOUS
     Route: 058
     Dates: start: 20100416, end: 20100420
  2. GLIMEPIRIDE [Concomitant]

REACTIONS (2)
  - HYPERSENSITIVITY [None]
  - INJECTION SITE REACTION [None]
